FAERS Safety Report 7207015-9 (Version None)
Quarter: 2011Q1

REPORT INFORMATION
  Report Type: 
  Country: None (occurrence: None)
  Receive Date: 20110103
  Receipt Date: 20101223
  Transmission Date: 20110831
  Serious: Yes (Hospitalization)
  Sender: FDA-Public Use
  Company Number: B0665539A

PATIENT
  Sex: Female
  Weight: 57 kg

DRUGS (1)
  1. SUMATRIPTAN [Suspect]
     Indication: MIGRAINE
     Route: 048
     Dates: start: 20030301, end: 20100504

REACTIONS (2)
  - SENSORY DISTURBANCE [None]
  - MUSCULOSKELETAL DISORDER [None]
